FAERS Safety Report 7620784-9 (Version None)
Quarter: 2011Q3

REPORT INFORMATION
  Report Type: 
  Country: None (occurrence: None)
  Receive Date: 20110719
  Receipt Date: 20110708
  Transmission Date: 20111222
  Serious: Yes (Other)
  Sender: FDA-Public Use
  Company Number: PHHY2011US61721

PATIENT
  Age: 37 Year
  Sex: Female

DRUGS (8)
  1. NITROGLYCERIN [Suspect]
     Dosage: 50 UG/MIN
  2. PROPYLTHIOURACIL [Concomitant]
     Indication: BASEDOW'S DISEASE
  3. OXYGEN [Concomitant]
  4. REMIFENTANIL [Suspect]
     Dosage: 0.15 UG/KG/MIN
  5. BUPIVACAINE HCL [Suspect]
     Dosage: 12 MG, UNK
  6. FENTANYL-100 [Suspect]
     Dosage: 15 MG, UNK
  7. PHENYLEPHRINE HCL [Suspect]
     Dosage: 50 UG, PER MIN
  8. MORPHINE [Suspect]
     Dosage: 150 MG, UNK
     Route: 037

REACTIONS (4)
  - RESPIRATORY DEPRESSION [None]
  - UTERINE HYPOTONUS [None]
  - SEDATION [None]
  - MATERNAL EXPOSURE DURING PREGNANCY [None]
